FAERS Safety Report 10032636 (Version 2)
Quarter: 2014Q2

REPORT INFORMATION
  Report Type: Spontaneous
  Country: US (occurrence: US)
  Receive Date: 20140324
  Receipt Date: 20140609
  Transmission Date: 20141212
  Serious: Yes (Hospitalization)
  Sender: FDA-Public Use
  Company Number: US-GLAXOSMITHKLINE-A1066289A

PATIENT
  Sex: Male

DRUGS (1)
  1. VOTRIENT [Suspect]
     Indication: RENAL CANCER
     Dosage: 800MG UNKNOWN
     Route: 048
     Dates: start: 20140328, end: 20140404

REACTIONS (3)
  - Investigation [Not Recovered/Not Resolved]
  - Disease progression [Unknown]
  - Hospice care [Unknown]
